FAERS Safety Report 16912936 (Version 1)
Quarter: 2019Q4

REPORT INFORMATION
  Report Type: Spontaneous
  Country: FR (occurrence: FR)
  Receive Date: 20191014
  Receipt Date: 20191014
  Transmission Date: 20200122
  Serious: Yes (Congenital Anomaly)
  Sender: FDA-Public Use
  Company Number: FR-TEVA-2019-FR-1120615

PATIENT
  Age: 0 Day
  Sex: Female
  Weight: 2.1 kg

DRUGS (3)
  1. SPIRIVA [Concomitant]
     Active Substance: TIOTROPIUM BROMIDE MONOHYDRATE
     Indication: ASTHMA
     Route: 064
     Dates: end: 20190818
  2. TRAMADOL (CHLORHYDRATE DE) [Suspect]
     Active Substance: TRAMADOL HYDROCHLORIDE
     Indication: PAIN
     Dosage: 150MG IN THE MORNING AND 200MG IN THE EVENING
     Route: 064
     Dates: start: 20181202, end: 20190818
  3. SERETIDE [Concomitant]
     Active Substance: FLUTICASONE PROPIONATE\SALMETEROL XINAFOATE
     Indication: ASTHMA
     Route: 064
     Dates: end: 20190818

REACTIONS (5)
  - Foetal growth restriction [Recovering/Resolving]
  - Foetal malnutrition [Recovered/Resolved]
  - Low birth weight baby [Recovering/Resolving]
  - Perineal fistula [Not Recovered/Not Resolved]
  - Withdrawal syndrome [Recovered/Resolved]

NARRATIVE: CASE EVENT DATE: 2019
